FAERS Safety Report 5793291-6 (Version None)
Quarter: 2008Q2

REPORT INFORMATION
  Report Type: 
  Country: None (occurrence: None)
  Receive Date: 20080626
  Receipt Date: 20080626
  Transmission Date: 20081010
  Serious: Yes (Other)
  Sender: FDA-Public Use
  Company Number: None

PATIENT
  Sex: Female
  Weight: 60.3284 kg

DRUGS (1)
  1. CELEXA [Suspect]
     Dosage: 1/2 AM PO
     Route: 048
     Dates: start: 20080604, end: 20080610

REACTIONS (2)
  - STOMACH DISCOMFORT [None]
  - VOMITING [None]
